FAERS Safety Report 17589988 (Version 1)
Quarter: 2020Q1

REPORT INFORMATION
  Report Type: Spontaneous
  Country: US (occurrence: US)
  Receive Date: 20200325
  Receipt Date: 20200325
  Transmission Date: 20200409
  Serious: Yes (Death)
  Sender: FDA-Public Use
  Company Number: None

PATIENT
  Age: 59 Year
  Sex: Female

DRUGS (1)
  1. CAPECITABINE 500MG TAB [Suspect]
     Active Substance: CAPECITABINE
     Indication: CHOLANGIOCARCINOMA
     Dosage: 1500 MG 2 DAILY 14 DAYS ORAL.?ONLY SHIP 13 JAN 2020
     Route: 048
     Dates: start: 20200113

REACTIONS (1)
  - Death [None]

NARRATIVE: CASE EVENT DATE: 20200325
